FAERS Safety Report 17373607 (Version 3)
Quarter: 2020Q2

REPORT INFORMATION
  Report Type: Spontaneous
  Country: US (occurrence: US)
  Receive Date: 20200205
  Receipt Date: 20200611
  Transmission Date: 20200713
  Serious: Yes (Hospitalization)
  Sender: FDA-Public Use
  Company Number: US-THERATECHNOLOGIES EUROPE LIMITED-2020-THE-IBA-000026

PATIENT
  Age: 54 Year
  Sex: Male

DRUGS (14)
  1. ENALAPRIL [Concomitant]
     Active Substance: ENALAPRIL
     Indication: HYPERTENSION
     Dosage: UNK
     Route: 048
     Dates: start: 20170605, end: 20200318
  2. ATAZANAVIR. [Concomitant]
     Active Substance: ATAZANAVIR
     Indication: HIV INFECTION
     Dosage: UNK
     Route: 048
     Dates: start: 20170605
  3. SMZ-TMP [Concomitant]
     Active Substance: SULFAMETHOXAZOLE\TRIMETHOPRIM
     Indication: ANTIFUNGAL PROPHYLAXIS
     Dosage: UNK
     Route: 048
     Dates: start: 20200204
  4. TROGARZO [Suspect]
     Active Substance: IBALIZUMAB-UIYK
     Dosage: 800 MG, EVERY 2 WEEKS
     Route: 042
     Dates: start: 20180524
  5. ABACAVIR. [Concomitant]
     Active Substance: ABACAVIR
     Indication: HIV INFECTION
     Dosage: UNK
     Route: 048
     Dates: start: 20170605
  6. DESCOVY [Concomitant]
     Active Substance: EMTRICITABINE\TENOFOVIR ALAFENAMIDE FUMARATE
     Indication: HIV INFECTION
     Dosage: UNK
     Route: 048
     Dates: start: 20180402
  7. TIVICAY [Concomitant]
     Active Substance: DOLUTEGRAVIR SODIUM
     Indication: HIV INFECTION
     Dosage: UNK
     Dates: start: 20170605
  8. GABAPENTIN. [Concomitant]
     Active Substance: GABAPENTIN
     Indication: POST HERPETIC NEURALGIA
     Dosage: UNK
     Route: 048
     Dates: start: 20170613
  9. NORCO [Concomitant]
     Active Substance: ACETAMINOPHEN\HYDROCODONE BITARTRATE
     Indication: PAIN
     Dosage: UNK
     Route: 048
     Dates: start: 20170531
  10. TROGARZO [Suspect]
     Active Substance: IBALIZUMAB-UIYK
     Indication: HIV INFECTION
     Dosage: 800 MG, EVERY 2 WEEKS
     Route: 042
     Dates: start: 20180524
  11. VITAMIN C [Concomitant]
     Active Substance: ASCORBIC ACID
     Indication: PRODUCT USED FOR UNKNOWN INDICATION
  12. FUROSEMIDE. [Concomitant]
     Active Substance: FUROSEMIDE
     Indication: OEDEMA
     Dosage: UNK
     Route: 048
     Dates: start: 20190618
  13. ZIDOVUDINE. [Concomitant]
     Active Substance: ZIDOVUDINE
     Indication: HIV INFECTION
     Dosage: UNK
     Route: 048
     Dates: start: 20171220
  14. EDURANT [Concomitant]
     Active Substance: RILPIVIRINE HYDROCHLORIDE
     Indication: HIV INFECTION
     Dosage: UNK
     Route: 048
     Dates: start: 20171219

REACTIONS (2)
  - Diarrhoea [Recovered/Resolved]
  - Diarrhoea [Recovered/Resolved]

NARRATIVE: CASE EVENT DATE: 20200108
